FAERS Safety Report 4815614-4 (Version None)
Quarter: 2005Q4

REPORT INFORMATION
  Report Type: 
  Country: None (occurrence: None)
  Receive Date: 20051031
  Receipt Date: 20010206
  Transmission Date: 20060501
  Serious: Yes (Hospitalization, Other)
  Sender: FDA-Public Use
  Company Number: US-BRISTOL-MYERS SQUIBB COMPANY-10706745

PATIENT
  Age: 62 Year
  Sex: Female
  Weight: 68 kg

DRUGS (4)
  1. TRAZODONE HCL [Suspect]
     Indication: DEPRESSION
     Dosage: IN THE EVENING
     Route: 048
     Dates: start: 19930101, end: 20001001
  2. TRAZODONE HCL [Suspect]
     Indication: INSOMNIA
     Dosage: IN THE EVENING
     Route: 048
     Dates: start: 19930101, end: 20001001
  3. ALBUTEROL [Concomitant]
  4. ESTRADIOL [Concomitant]

REACTIONS (3)
  - GASTROOESOPHAGEAL REFLUX DISEASE [None]
  - HEPATITIS C [None]
  - PNEUMONIA VIRAL [None]
